FAERS Safety Report 12188844 (Version 2)
Quarter: 2016Q2

REPORT INFORMATION
  Report Type: Report from Study
  Country: PA (occurrence: PA)
  Receive Date: 20160317
  Receipt Date: 20160418
  Transmission Date: 20160815
  Serious: Yes (Other)
  Sender: FDA-Public Use
  Company Number: PHHY2016PA034213

PATIENT
  Sex: Female
  Weight: 115 kg

DRUGS (4)
  1. FOLIC ACID. [Concomitant]
     Active Substance: FOLIC ACID
     Indication: PRODUCT USED FOR UNKNOWN INDICATION
     Dosage: 5 MG, QD
     Route: 048
  2. FUROSEMIDE. [Concomitant]
     Active Substance: FUROSEMIDE
     Indication: PRODUCT USED FOR UNKNOWN INDICATION
     Dosage: 0.5 DF, QD
     Route: 065
  3. IRBESARTAN. [Concomitant]
     Active Substance: IRBESARTAN
     Indication: PRODUCT USED FOR UNKNOWN INDICATION
     Dosage: 0.5 DF, QD
     Route: 048
  4. EXJADE [Suspect]
     Active Substance: DEFERASIROX
     Indication: THALASSAEMIA
     Dosage: 15 MG/KG, QD (3 DF OF 500 MG)
     Route: 048
     Dates: start: 2015

REACTIONS (8)
  - Pyrexia [Unknown]
  - Pain in extremity [Unknown]
  - Sickle cell anaemia with crisis [Unknown]
  - Varicophlebitis [Unknown]
  - Dyspnoea [Unknown]
  - Varicose vein [Unknown]
  - Renal failure [Unknown]
  - Fatigue [Unknown]
